FAERS Safety Report 6739827-X (Version None)
Quarter: 2010Q2

REPORT INFORMATION
  Report Type: 
  Country: None (occurrence: None)
  Receive Date: 20100525
  Receipt Date: 20100512
  Transmission Date: 20101027
  Serious: Yes (Hospitalization, Other)
  Sender: FDA-Public Use
  Company Number: PHHY2010US26600

PATIENT
  Sex: Male
  Weight: 50.9 kg

DRUGS (13)
  1. ICL670A ICL+ [Suspect]
     Indication: MYELODYSPLASTIC SYNDROME
     Dosage: 1000 MG
     Route: 048
     Dates: start: 20081104
  2. ICL670A ICL+ [Suspect]
     Indication: IRON OVERLOAD
  3. LOVENOX [Concomitant]
     Indication: PROPHYLAXIS
     Dosage: 40 MG
     Dates: start: 20091116, end: 20091118
  4. RED BLOOD CELLS [Concomitant]
     Indication: MYELODYSPLASTIC SYNDROME
     Dosage: 04 UNITS
     Dates: start: 20091118
  5. ALBUTEROL [Concomitant]
  6. MIACALCIN [Concomitant]
  7. COLACE [Concomitant]
  8. CALTRATE +D [Concomitant]
     Dosage: 1 DF, BID
  9. LOPRESSOR [Concomitant]
     Dosage: 25 MG, BID
  10. PRAVACHOL [Concomitant]
     Dosage: 10 MG A DAY
  11. METAMUCIL-2 [Concomitant]
  12. TAMSULOSIN HCL [Concomitant]
     Dosage: 0.4 MG A DAY
  13. PHENERGAN [Concomitant]
     Indication: PAIN
     Dosage: PRN

REACTIONS (22)
  - ANAEMIA [None]
  - ANGINA PECTORIS [None]
  - ARTERIAL RUPTURE [None]
  - ARTERIOSCLEROSIS [None]
  - ARTHRALGIA [None]
  - ASTHENIA [None]
  - CORONARY ARTERIAL STENT INSERTION [None]
  - CORONARY ARTERY DISEASE [None]
  - DYSPNOEA [None]
  - FEMORAL NECK FRACTURE [None]
  - GASTROOESOPHAGEAL REFLUX DISEASE [None]
  - GENERAL PHYSICAL HEALTH DETERIORATION [None]
  - HEPARIN-INDUCED THROMBOCYTOPENIA [None]
  - HIP ARTHROPLASTY [None]
  - HIP FRACTURE [None]
  - INTERSTITIAL LUNG DISEASE [None]
  - JUGULAR VEIN DISTENSION [None]
  - MUSCULOSKELETAL PAIN [None]
  - TACHYCARDIA [None]
  - TROPONIN INCREASED [None]
  - URINARY RETENTION [None]
  - WALKING AID USER [None]
